FAERS Safety Report 8829086 (Version 1)
Quarter: 2012Q4

REPORT INFORMATION
  Report Type: 
  Country: EC (occurrence: EC)
  Receive Date: 20121008
  Receipt Date: 20121008
  Transmission Date: 20130627
  Serious: Yes (Death)
  Sender: FDA-Public Use
  Company Number: PHHY2012EC088103

PATIENT
  Age: 83 Year
  Sex: Male

DRUGS (1)
  1. EXELON [Suspect]
     Dosage: 1.5 mg, UNK
     Route: 048
     Dates: start: 2006, end: 20120831

REACTIONS (2)
  - Gastric cancer [Fatal]
  - Neoplasm progression [Fatal]
